FAERS Safety Report 24650440 (Version 2)
Quarter: 2025Q1

REPORT INFORMATION
  Report Type: Report from Study
  Country: US (occurrence: US)
  Receive Date: 20241122
  Receipt Date: 20250122
  Transmission Date: 20250409
  Serious: Yes (Hospitalization)
  Sender: TAKEDA
  Company Number: US-TAKEDA-2024TUS084479

PATIENT
  Sex: Female

DRUGS (2)
  1. MARIBAVIR [Suspect]
     Active Substance: MARIBAVIR
     Indication: Cytomegalovirus infection
     Dosage: 400 MILLIGRAM, BID
     Dates: start: 20240829
  2. MARIBAVIR [Suspect]
     Active Substance: MARIBAVIR
     Indication: Liver transplant
     Dosage: 400 MILLIGRAM, BID
     Dates: start: 20241101, end: 20241104

REACTIONS (1)
  - Anaemia [Unknown]
